FAERS Safety Report 19837867 (Version 1)
Quarter: 2021Q3

REPORT INFORMATION
  Report Type: Spontaneous
  Country: FR (occurrence: FR)
  Receive Date: 20210916
  Receipt Date: 20210916
  Transmission Date: 20211014
  Serious: Yes (Other)
  Sender: FDA-Public Use
  Company Number: FR-SA-2021SA301895

PATIENT
  Age: 82 Year
  Sex: Female

DRUGS (1)
  1. PLAVIX [Suspect]
     Active Substance: CLOPIDOGREL BISULFATE
     Dosage: UNK

REACTIONS (4)
  - Fall [Unknown]
  - Product availability issue [Unknown]
  - Syncope [Unknown]
  - Illness [Unknown]
